FAERS Safety Report 9680773 (Version 2)
Quarter: 2013Q4

REPORT INFORMATION
  Report Type: Spontaneous
  Country: DE (occurrence: DE)
  Receive Date: 20131111
  Receipt Date: 20131111
  Transmission Date: 20140711
  Serious: Yes (Other)
  Sender: FDA-Public Use
  Company Number: PHHY2013DE064398

PATIENT
  Sex: Female
  Weight: 99 kg

DRUGS (4)
  1. GILENYA [Suspect]
     Indication: MULTIPLE SCLEROSIS
     Dosage: 0.5 MG, QD
     Route: 048
     Dates: start: 20130129
  2. VIANI [Concomitant]
     Indication: ASTHMA
  3. APSOMOL [Concomitant]
     Indication: ASTHMA
     Dosage: 3.33 UG, UNK
  4. BELLA HEXAL [Concomitant]
     Indication: CONTRACEPTION
     Route: 048

REACTIONS (3)
  - Intervertebral disc protrusion [Not Recovered/Not Resolved]
  - Pain [Not Recovered/Not Resolved]
  - Paraesthesia [Unknown]
